FAERS Safety Report 23889858 (Version 3)
Quarter: 2024Q4

REPORT INFORMATION
  Report Type: Report from Study
  Country: US (occurrence: US)
  Receive Date: 20240523
  Receipt Date: 20241019
  Transmission Date: 20250115
  Serious: Yes (Other)
  Sender: ABBVIE
  Company Number: US-ABBVIE-5769130

PATIENT
  Sex: Female

DRUGS (1)
  1. SKYRIZI [Suspect]
     Active Substance: RISANKIZUMAB-RZAA
     Indication: Psoriatic arthropathy
     Dosage: LAST ADMIN DATE: 2024
     Route: 058
     Dates: start: 20230420

REACTIONS (2)
  - Colectomy [Not Recovered/Not Resolved]
  - Physiotherapy [Unknown]

NARRATIVE: CASE EVENT DATE: 20240101
